FAERS Safety Report 6325938-X (Version None)
Quarter: 2009Q3

REPORT INFORMATION
  Report Type: 
  Country: None (occurrence: None)
  Receive Date: 20090824
  Receipt Date: 20090812
  Transmission Date: 20100115
  Serious: Yes (Death, Hospitalization)
  Sender: FDA-Public Use
  Company Number: GB-PFIZER INC-2009227378

PATIENT
  Age: 64 Year

DRUGS (9)
  1. SUTENT [Suspect]
     Dosage: 50 MG, 1X/DAY
     Route: 048
     Dates: start: 20090326, end: 20090424
  2. ADALIMUMAB [Concomitant]
     Indication: RHEUMATOID ARTHRITIS
  3. RAMIPRIL [Concomitant]
     Dosage: 10 MG, 1X/DAY
     Route: 048
  4. GLICLAZIDE [Concomitant]
     Dosage: 80 MG, 2X/DAY
     Route: 048
  5. GABAPENTIN [Concomitant]
     Dosage: 300 MG, 3X/DAY
     Route: 048
  6. MST [Concomitant]
     Dosage: 50 MG, 2X/DAY
  7. DIAZEPAM [Concomitant]
     Dosage: 5 MG, UNK
  8. AMOXICILLIN [Concomitant]
     Dosage: 250 MG, 3X/DAY
     Dates: end: 20090514
  9. AUGMENTIN [Concomitant]
     Dosage: 625 MG, 3X/DAY
     Dates: start: 20090514

REACTIONS (5)
  - CARDIAC FAILURE [None]
  - DYSPNOEA [None]
  - LUNG CONSOLIDATION [None]
  - OEDEMA PERIPHERAL [None]
  - PLEURAL EFFUSION [None]
